FAERS Safety Report 16806198 (Version 1)
Quarter: 2019Q3

REPORT INFORMATION
  Report Type: Spontaneous
  Country: US (occurrence: US)
  Receive Date: 20190913
  Receipt Date: 20190913
  Transmission Date: 20191005
  Serious: Yes (Life-Threatening)
  Sender: FDA-Public Use
  Company Number: PHHY2019US212212

PATIENT
  Age: 69 Year
  Sex: Female

DRUGS (1)
  1. CLINDAMYCIN. [Suspect]
     Active Substance: CLINDAMYCIN
     Indication: CELLULITIS
     Dosage: 300 MG, TID
     Route: 065

REACTIONS (17)
  - Respiratory failure [Unknown]
  - Rash erythematous [Unknown]
  - Staphylococcal infection [Unknown]
  - Hyponatraemia [Unknown]
  - Septic shock [Unknown]
  - Neutrophil count increased [Unknown]
  - Leukocytosis [Unknown]
  - Vulvovaginal swelling [Unknown]
  - Erythema [Unknown]
  - Tachypnoea [Unknown]
  - Acute kidney injury [Unknown]
  - Blister [Unknown]
  - Acute generalised exanthematous pustulosis [Unknown]
  - Swelling [Unknown]
  - Oral pain [Unknown]
  - Hypotension [Unknown]
  - Pleural effusion [Unknown]
